FAERS Safety Report 7979253-9 (Version None)
Quarter: 2011Q4

REPORT INFORMATION
  Report Type: 
  Country: None (occurrence: None)
  Receive Date: 20111214
  Receipt Date: 20111214
  Transmission Date: 20120403
  Serious: Yes (Other)
  Sender: FDA-Public Use
  Company Number: None

PATIENT
  Age: 30 Year
  Sex: Male
  Weight: 95.254 kg

DRUGS (1)
  1. ACETAZOLAMIDE [Suspect]
     Indication: INTRACRANIAL PRESSURE INCREASED
     Dosage: 250 MG
     Route: 048
     Dates: start: 20111125, end: 20111128

REACTIONS (1)
  - DYSURIA [None]
